FAERS Safety Report 9424111 (Version 1)
Quarter: 2013Q3

REPORT INFORMATION
  Report Type: Spontaneous
  Country: US (occurrence: US)
  Receive Date: 20130729
  Receipt Date: 20130729
  Transmission Date: 20140515
  Serious: Yes (Death)
  Sender: FDA-Public Use
  Company Number: US-ROCHE-1253399

PATIENT
  Sex: Female
  Weight: 73.55 kg

DRUGS (11)
  1. XELODA [Suspect]
     Indication: BREAST CANCER
     Route: 048
     Dates: start: 20100211, end: 20101230
  2. NEXIUM [Concomitant]
  3. METFORMIN [Concomitant]
     Route: 065
  4. CLONAZEPAM [Concomitant]
     Route: 065
  5. LASIX [Concomitant]
  6. GLIPIZIDE [Concomitant]
  7. HCTZ [Concomitant]
  8. CLONIDINE [Concomitant]
  9. ALPRAZOLAM [Concomitant]
  10. TYKERB [Concomitant]
  11. DYAZIDE [Concomitant]

REACTIONS (1)
  - Post procedural complication [Fatal]
